FAERS Safety Report 23347602 (Version 2)
Quarter: 2024Q2

REPORT INFORMATION
  Report Type: Spontaneous
  Country: US (occurrence: US)
  Receive Date: 20231228
  Receipt Date: 20240401
  Transmission Date: 20240716
  Serious: No
  Sender: FDA-Public Use
  Company Number: US-Calliditas-2023CAL01671

PATIENT
  Age: 53 Year
  Sex: Male

DRUGS (3)
  1. TARPEYO [Suspect]
     Active Substance: BUDESONIDE
     Indication: IgA nephropathy
     Route: 048
     Dates: start: 20230601
  2. FISH OIL [Concomitant]
     Active Substance: FISH OIL
  3. LISINOPRIL [Concomitant]
     Active Substance: LISINOPRIL

REACTIONS (8)
  - Muscular weakness [Not Recovered/Not Resolved]
  - Hypertension [Not Recovered/Not Resolved]
  - Oedema peripheral [Recovering/Resolving]
  - Insomnia [Not Recovered/Not Resolved]
  - Muscle atrophy [Not Recovered/Not Resolved]
  - COVID-19 [Recovered/Resolved]
  - Product residue present [Not Recovered/Not Resolved]
  - Blood pressure decreased [Recovered/Resolved]

NARRATIVE: CASE EVENT DATE: 20230615
